FAERS Safety Report 16584356 (Version 2)
Quarter: 2019Q3

REPORT INFORMATION
  Report Type: Spontaneous
  Country: HU (occurrence: HU)
  Receive Date: 20190717
  Receipt Date: 20190726
  Transmission Date: 20191004
  Serious: Yes (Life-Threatening, Hospitalization)
  Sender: FDA-Public Use
  Company Number: HU-009507513-1907HUN004593

PATIENT
  Age: 45 Year
  Sex: Male

DRUGS (5)
  1. TIENAM 500 MG POR OLDATOS INF?ZI?HOZ [Suspect]
     Active Substance: CILASTATIN SODIUM\IMIPENEM
     Indication: SEPTIC SHOCK
     Dosage: UNK
     Route: 042
     Dates: start: 20190519, end: 20190521
  2. DALACIN [Suspect]
     Active Substance: CLINDAMYCIN
     Indication: STREPTOCOCCAL INFECTION
     Dosage: 1800 MILLIGRAM, QD (600 MG, 3X/DAY)
     Route: 042
     Dates: start: 201905, end: 20190527
  3. PENICILLIN G [Suspect]
     Active Substance: PENICILLIN G
     Indication: STREPTOCOCCAL INFECTION
     Dosage: 4 MILLION IU (6 TIMES PER DAY)
     Route: 042
     Dates: start: 201905, end: 20190530
  4. PENICILLIN G [Suspect]
     Active Substance: PENICILLIN G
     Indication: SOFT TISSUE INFECTION
  5. TAZOCIN (PIPERACILLIN SODIUM (+) TAZOBACTAM SODIUM) [Suspect]
     Active Substance: PIPERACILLIN SODIUM\TAZOBACTAM SODIUM
     Indication: SOFT TISSUE INFECTION
     Dosage: 13.5 GRAM, QD (4.5 G, 3X/DAY)
     Route: 042
     Dates: start: 201905, end: 20190527

REACTIONS (2)
  - Soft tissue infection [Recovered/Resolved]
  - Condition aggravated [Recovered/Resolved]

NARRATIVE: CASE EVENT DATE: 20190519
